FAERS Safety Report 10056937 (Version 1)
Quarter: 2014Q2

REPORT INFORMATION
  Report Type: Spontaneous
  Country: FR (occurrence: FR)
  Receive Date: 20140403
  Receipt Date: 20140403
  Transmission Date: 20141212
  Serious: Yes (Other)
  Sender: FDA-Public Use
  Company Number: FR-TEVA-472635ISR

PATIENT
  Age: 55 Year
  Sex: Female

DRUGS (4)
  1. OFLOXACINE TEVA 200 MG [Suspect]
     Indication: STAPHYLOCOCCAL INFECTION
     Dosage: DISCONTINUED TWO AND A HALF WEEKS AFTER THE BEGINNING OF TREATMENT
     Route: 065
     Dates: start: 20140304
  2. DIFFU-K [Concomitant]
  3. SOLUPRED [Concomitant]
  4. SOLUPRED [Concomitant]
     Dosage: THEN DEGRESSIVE DOSE

REACTIONS (4)
  - Visual field defect [Unknown]
  - Visual acuity reduced [Not Recovered/Not Resolved]
  - Photopsia [Not Recovered/Not Resolved]
  - Vision blurred [Not Recovered/Not Resolved]
